FAERS Safety Report 20344413 (Version 1)
Quarter: 2022Q1

REPORT INFORMATION
  Report Type: Report from Study
  Country: US (occurrence: US)
  Receive Date: 20220118
  Receipt Date: 20220118
  Transmission Date: 20220423
  Serious: Yes (Hospitalization, Disabling, Other)
  Sender: FDA-Public Use
  Company Number: US-SA-2014SA173469

PATIENT
  Age: 57 Year
  Sex: Male

DRUGS (2)
  1. TERIFLUNOMIDE [Suspect]
     Active Substance: TERIFLUNOMIDE
     Indication: Multiple sclerosis
     Dosage: 14 MG, QD
     Route: 048
     Dates: start: 20130606
  2. TERIFLUNOMIDE [Suspect]
     Active Substance: TERIFLUNOMIDE
     Dosage: 14 MG, QOD
     Route: 048
     Dates: start: 202101

REACTIONS (11)
  - Fall [Recovered/Resolved]
  - Hip fracture [Recovered/Resolved]
  - Weight bearing difficulty [Recovered/Resolved]
  - Joint dislocation [Unknown]
  - Fall [Not Recovered/Not Resolved]
  - Fracture [Recovered/Resolved]
  - Balance disorder [Unknown]
  - Cough [Not Recovered/Not Resolved]
  - Hypoacusis [Unknown]
  - Throat clearing [Not Recovered/Not Resolved]
  - Product use issue [Unknown]

NARRATIVE: CASE EVENT DATE: 20130601
